FAERS Safety Report 14192104 (Version 1)
Quarter: 2017Q4

REPORT INFORMATION
  Report Type: Spontaneous
  Country: US (occurrence: US)
  Receive Date: 20171115
  Receipt Date: 20171115
  Transmission Date: 20180321
  Serious: No
  Sender: FDA-Public Use
  Company Number: US-LEXICON PHARMACEUTICALS, INC-17-1606-01043

PATIENT
  Sex: Female

DRUGS (8)
  1. OCTREOTIDE ACETATE. [Concomitant]
     Active Substance: OCTREOTIDE ACETATE
     Dosage: 50 MCG/ML
  2. WELCHOL [Concomitant]
     Active Substance: COLESEVELAM HYDROCHLORIDE
  3. TELOTRISTAT ETHYL [Suspect]
     Active Substance: TELOTRISTAT ETHYL
     Indication: CARCINOID SYNDROME
     Route: 048
     Dates: start: 20170912, end: 2017
  4. SPIRONOLACTONE. [Concomitant]
     Active Substance: SPIRONOLACTONE
  5. ROSUVASTATIN CALCIUM. [Concomitant]
     Active Substance: ROSUVASTATIN CALCIUM
  6. CHOLESTYRAMINE. [Concomitant]
     Active Substance: CHOLESTYRAMINE
  7. CREON [Concomitant]
     Active Substance: PANCRELIPASE AMYLASE\PANCRELIPASE LIPASE\PANCRELIPASE PROTEASE
  8. METOPROLOL. [Concomitant]
     Active Substance: METOPROLOL
     Dosage: ER

REACTIONS (1)
  - Malaise [Unknown]

NARRATIVE: CASE EVENT DATE: 2017
